FAERS Safety Report 24834248 (Version 1)
Quarter: 2025Q1

REPORT INFORMATION
  Report Type: Spontaneous
  Country: US (occurrence: None)
  Receive Date: 20250110
  Receipt Date: 20250110
  Transmission Date: 20250408
  Serious: No
  Sender: FDA-CTU
  Company Number: None

PATIENT
  Age: 53 Year
  Sex: Male

DRUGS (1)
  1. CLOZAPINE [Suspect]
     Active Substance: CLOZAPINE
     Indication: Schizoaffective disorder
     Dosage: 250.00 MG AT BEDTIME ORAL
     Route: 048
     Dates: start: 20240829

REACTIONS (10)
  - Angina pectoris [None]
  - Confusional state [None]
  - Hyperhidrosis [None]
  - Dizziness [None]
  - Headache [None]
  - Syncope [None]
  - Hallucination, auditory [None]
  - Drug intolerance [None]
  - Insomnia [None]
  - Depression [None]

NARRATIVE: CASE EVENT DATE: 20241024
